FAERS Safety Report 12839611 (Version 1)
Quarter: 2016Q4

REPORT INFORMATION
  Report Type: Spontaneous
  Country: US (occurrence: US)
  Receive Date: 20161012
  Receipt Date: 20161012
  Transmission Date: 20170207
  Serious: No
  Sender: FDA-Public Use
  Company Number: US-AMNEAL PHARMACEUTICALS-2016AMN00186

PATIENT
  Age: 79 Year
  Sex: Female
  Weight: 79.37 kg

DRUGS (8)
  1. LASIX [Concomitant]
     Active Substance: FUROSEMIDE
  2. POTASSIUM [Concomitant]
     Active Substance: POTASSIUM
  3. CRESTOR [Concomitant]
     Active Substance: ROSUVASTATIN CALCIUM
     Route: 048
  4. ZETIA [Concomitant]
     Active Substance: EZETIMIBE
  5. VITAMINS [Concomitant]
     Active Substance: VITAMINS
  6. VERAPAMIL [Concomitant]
     Active Substance: VERAPAMIL HYDROCHLORIDE
  7. LOVAXIL [Concomitant]
  8. HYDROCODONE AND ACETAMINOPHEN [Suspect]
     Active Substance: ACETAMINOPHEN\HYDROCODONE
     Indication: ANALGESIC THERAPY
     Dosage: ONE TABLET,ONE TIME A DAY AS NEEDED
     Route: 048
     Dates: end: 20160327

REACTIONS (1)
  - Vision blurred [Recovering/Resolving]

NARRATIVE: CASE EVENT DATE: 201602
